FAERS Safety Report 17129042 (Version 1)
Quarter: 2019Q4

REPORT INFORMATION
  Report Type: Spontaneous
  Country: JP (occurrence: JP)
  Receive Date: 20191209
  Receipt Date: 20191209
  Transmission Date: 20200122
  Serious: Yes (Other)
  Sender: FDA-Public Use
  Company Number: JP-PFIZER INC-2019525840

PATIENT
  Age: 86 Year
  Sex: Male

DRUGS (3)
  1. HALCION [Suspect]
     Active Substance: TRIAZOLAM
     Indication: INSOMNIA
     Dosage: 2 DF, UNK
     Route: 048
  2. HALCION [Suspect]
     Active Substance: TRIAZOLAM
     Dosage: 0.125 MG, UNK
     Route: 048
  3. HALCION [Suspect]
     Active Substance: TRIAZOLAM
     Dosage: 0.125 MG, ALTERNATE DAY
     Route: 048

REACTIONS (2)
  - Somnolence [Unknown]
  - Dementia [Unknown]
